FAERS Safety Report 25031701 (Version 1)
Quarter: 2025Q1

REPORT INFORMATION
  Report Type: Spontaneous
  Country: US (occurrence: US)
  Receive Date: 20250303
  Receipt Date: 20250303
  Transmission Date: 20250408
  Serious: No
  Sender: PFIZER
  Company Number: US-PFIZER INC-202500045478

PATIENT
  Age: 77 Year
  Sex: Female
  Weight: 79.83 kg

DRUGS (1)
  1. XELJANZ XR [Suspect]
     Active Substance: TOFACITINIB CITRATE
     Indication: Colitis ulcerative
     Dosage: 11 MG, 1X/DAY
     Dates: start: 2020

REACTIONS (3)
  - Pharyngeal swelling [Unknown]
  - Nasal oedema [Unknown]
  - Nasopharyngitis [Not Recovered/Not Resolved]
